FAERS Safety Report 7715263-4 (Version None)
Quarter: 2011Q3

REPORT INFORMATION
  Report Type: 
  Country: None (occurrence: None)
  Receive Date: 20110829
  Receipt Date: 20110825
  Transmission Date: 20111222
  Serious: Yes (Death)
  Sender: FDA-Public Use
  Company Number: PHEH2011US02622

PATIENT
  Sex: Female

DRUGS (2)
  1. EXELON [Suspect]
     Dosage: UNK UKN, UNK
  2. CITALOPRAM [Concomitant]
     Dosage: UNK UKN, UNK

REACTIONS (4)
  - ULCER [None]
  - BLOOD PRESSURE INCREASED [None]
  - DEATH [None]
  - DEPRESSION [None]
